FAERS Safety Report 16712500 (Version 2)
Quarter: 2019Q3

REPORT INFORMATION
  Report Type: Spontaneous
  Country: RU (occurrence: RU)
  Receive Date: 20190816
  Receipt Date: 20190823
  Transmission Date: 20191004
  Serious: Yes (Life-Threatening)
  Sender: FDA-Public Use
  Company Number: RU-EXELIXIS-CABO-19022004

PATIENT
  Sex: Male
  Weight: 100 kg

DRUGS (2)
  1. CABOMETYX [Suspect]
     Active Substance: CABOZANTINIB S-MALATE
     Dosage: 40 MG, UNK
  2. CABOMETYX [Suspect]
     Active Substance: CABOZANTINIB S-MALATE
     Indication: RENAL CELL CARCINOMA
     Dosage: 60 MG, QD
     Route: 048
     Dates: start: 20190416

REACTIONS (4)
  - Palmar-plantar erythrodysaesthesia syndrome [Recovering/Resolving]
  - Hypertension [Recovering/Resolving]
  - Oropharyngeal pain [Recovering/Resolving]
  - Rash [Recovering/Resolving]
